FAERS Safety Report 19206412 (Version 1)
Quarter: 2021Q2

REPORT INFORMATION
  Report Type: Spontaneous
  Country: US (occurrence: US)
  Receive Date: 20210501
  Receipt Date: 20210501
  Transmission Date: 20210717
  Serious: Yes (Hospitalization)
  Sender: FDA-Public Use
  Company Number: None

PATIENT
  Age: 56 Year
  Sex: Male
  Weight: 88 kg

DRUGS (1)
  1. RITUXIMAB (MOAB C2B8 ANTI CD20, CHIMERIC) [Suspect]
     Active Substance: RITUXIMAB
     Dates: end: 20201214

REACTIONS (3)
  - COVID-19 pneumonia [None]
  - SARS-CoV-2 test positive [None]
  - Dyspnoea [None]

NARRATIVE: CASE EVENT DATE: 20201226
